FAERS Safety Report 23732811 (Version 1)
Quarter: 2024Q2

REPORT INFORMATION
  Report Type: Spontaneous
  Country: US (occurrence: US)
  Receive Date: 20240411
  Receipt Date: 20240411
  Transmission Date: 20240715
  Serious: Yes (Hospitalization, Other)
  Sender: FDA-Public Use
  Company Number: US-BRISTOL-MYERS SQUIBB COMPANY-2024-055617

PATIENT
  Age: 74 Year
  Sex: Male

DRUGS (1)
  1. LENALIDOMIDE [Suspect]
     Active Substance: LENALIDOMIDE
     Indication: Plasma cell myeloma
     Dosage: TAKE 1 CAPSULE (5MG TOTAL) BY MOUTH ONCE DAILY FOR 14 DAYS ON, FOLLOWED BY 7 DAYS OFF. REPEAT CYCLE
     Route: 048

REACTIONS (3)
  - Pneumonia aspiration [Recovering/Resolving]
  - Renal failure [Recovering/Resolving]
  - Off label use [Unknown]
